FAERS Safety Report 6305463-2 (Version None)
Quarter: 2009Q3

REPORT INFORMATION
  Report Type: 
  Country: None (occurrence: None)
  Receive Date: 20090811
  Receipt Date: 20090616
  Transmission Date: 20100115
  Serious: Yes (Death, Hospitalization)
  Sender: FDA-Public Use
  Company Number: PHHY2009JP16206

PATIENT
  Sex: Male

DRUGS (4)
  1. ICL670A ICL+DISTAB [Suspect]
     Indication: MYELODYSPLASTIC SYNDROME
     Dosage: 500 MG DAILY
     Route: 048
     Dates: start: 20081209, end: 20081223
  2. ICL670A ICL+DISTAB [Suspect]
     Indication: IRON OVERLOAD
  3. CRAVIT [Concomitant]
     Dosage: 100MG
     Route: 048
     Dates: start: 20081107, end: 20081226
  4. RED BLOOD CELLS [Concomitant]
     Indication: MYELODYSPLASTIC SYNDROME

REACTIONS (3)
  - ASTHENIA [None]
  - MALIGNANT NEOPLASM PROGRESSION [None]
  - RESPIRATORY ARREST [None]
